FAERS Safety Report 4883251-1 (Version None)
Quarter: 2006Q1

REPORT INFORMATION
  Report Type: 
  Country: None (occurrence: None)
  Receive Date: 20060112
  Receipt Date: 20060104
  Transmission Date: 20060701
  Serious: Yes (Other)
  Sender: FDA-Public Use
  Company Number: 208640

PATIENT
  Age: 61 Year
  Sex: Female

DRUGS (4)
  1. TENECTEPLASE (TENECTEPLASE) PWDR + SOLVENT, INJECTION SOLN, 50MG [Suspect]
     Indication: MYOCARDIAL INFARCTION
     Dosage: 35 MG, SINGLE, IV BOLUS
     Route: 040
     Dates: start: 20040707, end: 20040707
  2. HEPARIN [Suspect]
     Indication: MYOCARDIAL INFARCTION
     Dosage: 3900 UNIT, SINGLE, IV BOLUS
     Route: 040
     Dates: start: 20040707, end: 20040707
  3. REOPRO [Concomitant]
  4. INOTROPIC AGENT (INOTROPIC AGENTS) [Concomitant]

REACTIONS (8)
  - CARDIAC ARREST [None]
  - CARDIOGENIC SHOCK [None]
  - CORONARY ARTERY DISSECTION [None]
  - ELECTROMECHANICAL DISSOCIATION [None]
  - HAEMATOCRIT DECREASED [None]
  - HEPATIC RUPTURE [None]
  - OPERATIVE HAEMORRHAGE [None]
  - VENTRICULAR FIBRILLATION [None]
